FAERS Safety Report 6242112-6 (Version None)
Quarter: 2009Q2

REPORT INFORMATION
  Report Type: 
  Country: None (occurrence: None)
  Receive Date: 20090624
  Receipt Date: 20070517
  Transmission Date: 20091009
  Serious: Yes (Other)
  Sender: FDA-Public Use
  Company Number: US-ASTRAZENECA-2006UW07904

PATIENT
  Age: 48 Year
  Sex: Female
  Weight: 148 kg

DRUGS (10)
  1. SEROQUEL [Suspect]
     Indication: DEPRESSION
     Dosage: 25 MG - 200 MG QHS (WHICH SHE WAS TITRATING OFF)
     Route: 048
     Dates: start: 20030619
  2. SEROQUEL [Suspect]
     Indication: SLEEP DISORDER
     Dosage: 25 MG - 200 MG QHS (WHICH SHE WAS TITRATING OFF)
     Route: 048
     Dates: start: 20030619
  3. SEROQUEL [Suspect]
     Indication: PANIC ATTACK
     Dosage: 25 MG - 200 MG QHS (WHICH SHE WAS TITRATING OFF)
     Route: 048
     Dates: start: 20030619
  4. SEROQUEL [Suspect]
     Dosage: 50-800 MG
     Route: 048
     Dates: start: 20030801, end: 20060301
  5. SEROQUEL [Suspect]
     Dosage: 50-800 MG
     Route: 048
     Dates: start: 20030801, end: 20060301
  6. SEROQUEL [Suspect]
     Dosage: 50-800 MG
     Route: 048
     Dates: start: 20030801, end: 20060301
  7. PAXIL [Concomitant]
     Dates: start: 20040101
  8. PAXIL CR [Concomitant]
     Dosage: 25 MG - 37.5 MG (DISPENSED)
     Dates: start: 20051206
  9. LEVOTHROID [Concomitant]
     Dosage: 150 MCG DISPENSED
     Dates: start: 20051215
  10. TRICOR [Concomitant]
     Dates: start: 20051213

REACTIONS (5)
  - BLOOD CHOLESTEROL INCREASED [None]
  - DIABETIC COMPLICATION [None]
  - DIABETIC NEUROPATHY [None]
  - OBESITY [None]
  - TYPE 2 DIABETES MELLITUS [None]
